FAERS Safety Report 23039643 (Version 1)
Quarter: 2023Q4

REPORT INFORMATION
  Report Type: Spontaneous
  Country: HR (occurrence: None)
  Receive Date: 20231006
  Receipt Date: 20231006
  Transmission Date: 20240109
  Serious: Yes (Other)
  Sender: FDA-Public Use
  Company Number: 2023A225322

PATIENT
  Age: 23376 Day
  Sex: Female

DRUGS (1)
  1. IMFINZI [Suspect]
     Active Substance: DURVALUMAB
     Dosage: UNKNOWN
     Route: 017
     Dates: start: 20190322

REACTIONS (5)
  - Radiation pneumonitis [Unknown]
  - Pneumonia [Unknown]
  - Emphysema [Unknown]
  - Hepatic cyst [Unknown]
  - Back pain [Unknown]
